FAERS Safety Report 7372987-9 (Version None)
Quarter: 2011Q1

REPORT INFORMATION
  Report Type: 
  Country: None (occurrence: None)
  Receive Date: 20110324
  Receipt Date: 20110321
  Transmission Date: 20110831
  Serious: Yes (Death, Other)
  Sender: FDA-Public Use
  Company Number: FR-PFIZER INC-2011061299

PATIENT
  Age: 80 Year
  Sex: Male

DRUGS (8)
  1. LYRICA [Suspect]
     Indication: NEUROPATHY PERIPHERAL
     Dosage: 25 MG, 1X/DAY
     Dates: start: 20110215, end: 20110201
  2. SPIRIVA [Concomitant]
  3. LYRICA [Suspect]
     Dosage: 50 MG, 1X/DAY
     Dates: start: 20110201, end: 20110101
  4. OXYGEN [Concomitant]
  5. SYMBICORT [Concomitant]
  6. TAREG [Concomitant]
  7. EUPRESSYL [Concomitant]
  8. XATRAL [Concomitant]
     Dosage: UNK
     Dates: start: 20110215

REACTIONS (4)
  - LUNG INFECTION [None]
  - SUPERINFECTION [None]
  - PULMONARY EMBOLISM [None]
  - MYOCLONUS [None]
